FAERS Safety Report 8269625-X (Version None)
Quarter: 2012Q2

REPORT INFORMATION
  Report Type: 
  Country: None (occurrence: None)
  Receive Date: 20120410
  Receipt Date: 20120403
  Transmission Date: 20120825
  Serious: Yes (Hospitalization)
  Sender: FDA-Public Use
  Company Number: US-BIOGENIDEC-2012BI010985

PATIENT
  Sex: Female

DRUGS (4)
  1. TYSABRI [Suspect]
     Route: 042
     Dates: start: 20110708, end: 20120222
  2. TYSABRI [Suspect]
     Route: 042
     Dates: start: 20100916, end: 20101112
  3. TYSABRI [Suspect]
     Indication: MULTIPLE SCLEROSIS
     Route: 042
     Dates: start: 20070315, end: 20090311
  4. TYSABRI [Suspect]
     Route: 042
     Dates: start: 20091005, end: 20091102

REACTIONS (2)
  - CONVULSION [None]
  - URINARY TRACT INFECTION [None]
